FAERS Safety Report 6938423-9 (Version None)
Quarter: 2010Q3

REPORT INFORMATION
  Report Type: 
  Country: None (occurrence: None)
  Receive Date: 20100824
  Receipt Date: 20100804
  Transmission Date: 20110219
  Serious: Yes (Hospitalization, Other)
  Sender: FDA-Public Use
  Company Number: JP-BAYER-201036040GPV

PATIENT
  Age: 67 Year
  Sex: Male
  Weight: 59 kg

DRUGS (14)
  1. FLUDARABINE [Suspect]
     Indication: CORD BLOOD TRANSPLANT THERAPY
     Dates: start: 20091214, end: 20091220
  2. THYMOGLOBULIN [Suspect]
     Indication: STEM CELL TRANSPLANT
     Dosage: TOTAL DAILY DOSE: 60 MG
     Route: 042
     Dates: start: 20091221, end: 20091221
  3. BUSULFAN [Suspect]
     Indication: STEM CELL TRANSPLANT
     Dates: start: 20091219, end: 20091220
  4. CYTARABINE [Suspect]
     Indication: CORD BLOOD TRANSPLANT THERAPY
     Dates: start: 20091214, end: 20091218
  5. METHYLPREDNISOLONE SODIUM SUCCINATE [Concomitant]
     Indication: PREMEDICATION
     Dates: start: 20091221, end: 20091222
  6. MICAFUNGIN SODIUM [Concomitant]
     Indication: ANTIFUNGAL PROPHYLAXIS
     Dates: start: 20091215, end: 20100121
  7. CEFEPIME HYDROCHLORIDE [Concomitant]
     Indication: INFECTION PROPHYLAXIS
     Dates: start: 20091219, end: 20100114
  8. FILGRASTIM (GENETICAL RECOMBINATION) [Concomitant]
     Indication: INFECTION PROPHYLAXIS
     Dates: start: 20091227, end: 20100121
  9. FILGRASTIM (GENETICAL RECOMBINATION) [Concomitant]
     Dates: start: 20091214, end: 20091217
  10. PIPERACILLIN AND TAZOBACTAM [Concomitant]
  11. PREDNISOLONE [Concomitant]
     Indication: PREMEDICATION
     Dates: start: 20100121, end: 20100502
  12. MEROPENEM TRIHYDRATE [Concomitant]
     Indication: INFECTION PROPHYLAXIS
     Dates: start: 20100114, end: 20100131
  13. ITRACONAZOLE [Concomitant]
     Indication: ANTIFUNGAL PROPHYLAXIS
     Dates: start: 20100408, end: 20100502
  14. TACROLIMUS [Concomitant]
     Indication: PROPHYLAXIS AGAINST GRAFT VERSUS HOST DISEASE
     Dates: start: 20091223, end: 20100410

REACTIONS (4)
  - ACUTE MYELOID LEUKAEMIA RECURRENT [None]
  - CYTOMEGALOVIRUS TEST POSITIVE [None]
  - ENCEPHALITIS [None]
  - THROMBOTIC MICROANGIOPATHY [None]
